FAERS Safety Report 5888584-8 (Version None)
Quarter: 2008Q3

REPORT INFORMATION
  Report Type: 
  Country: None (occurrence: None)
  Receive Date: 20080916
  Receipt Date: 20080901
  Transmission Date: 20090109
  Serious: Yes (Hospitalization)
  Sender: FDA-Public Use
  Company Number: DSJ-2008-10879

PATIENT
  Age: 69 Year
  Sex: Female

DRUGS (4)
  1. OLMETEC (OLMESARTAN MEDOXOMIL) (TABLET) (OLMESARTAN MEDOXOMIL) [Suspect]
     Indication: HYPERTENSION
     Dosage: 10 MG, PER ORAL
     Route: 048
     Dates: start: 20080313, end: 20080522
  2. AMLODIPINE [Concomitant]
  3. LANSOPRAZOLE [Concomitant]
  4. AMARYL (GLIMEPIRIDE) (GLIMEPRIDE) [Concomitant]

REACTIONS (1)
  - NEPHROGENIC ANAEMIA [None]
